FAERS Safety Report 7563156-8 (Version None)
Quarter: 2011Q2

REPORT INFORMATION
  Report Type: 
  Country: None (occurrence: None)
  Receive Date: 20110615
  Receipt Date: 20110609
  Transmission Date: 20111010
  Serious: Yes (Death)
  Sender: FDA-Public Use
  Company Number: 2011001822

PATIENT
  Age: 91 Year
  Sex: Female

DRUGS (2)
  1. TARCEVA [Suspect]
     Indication: LUNG NEOPLASM MALIGNANT
     Dosage: 100 MG, UID/QD, ORAL ; 25 MG, /D, ORAL
     Route: 048
     Dates: start: 20110411
  2. TARCEVA [Suspect]
     Indication: LUNG NEOPLASM MALIGNANT
     Dosage: 100 MG, UID/QD, ORAL ; 25 MG, /D, ORAL
     Route: 048
     Dates: start: 20110517

REACTIONS (2)
  - RASH [None]
  - DIARRHOEA [None]
